FAERS Safety Report 16432886 (Version 2)
Quarter: 2019Q3

REPORT INFORMATION
  Report Type: Spontaneous
  Country: US (occurrence: US)
  Receive Date: 20190614
  Receipt Date: 20190919
  Transmission Date: 20191004
  Serious: No
  Sender: FDA-Public Use
  Company Number: US-JNJFOC-20190529825

PATIENT
  Sex: Female
  Weight: 104.42 kg

DRUGS (4)
  1. INVEGA SUSTENNA [Suspect]
     Active Substance: PALIPERIDONE PALMITATE
     Indication: PSYCHOTIC DISORDER
     Route: 030
  2. WELLBUTRIN [Concomitant]
     Active Substance: BUPROPION HYDROCHLORIDE
     Indication: DEPRESSION
  3. WELLBUTRIN [Concomitant]
     Active Substance: BUPROPION HYDROCHLORIDE
     Indication: SMOKING CESSATION THERAPY
     Route: 065
  4. INVEGA SUSTENNA [Suspect]
     Active Substance: PALIPERIDONE PALMITATE
     Indication: AFFECTIVE DISORDER

REACTIONS (7)
  - Skin atrophy [Recovering/Resolving]
  - Apathy [Recovering/Resolving]
  - Weight increased [Recovering/Resolving]
  - Skin irritation [Recovering/Resolving]
  - Injection site mass [Recovering/Resolving]
  - Memory impairment [Recovering/Resolving]
  - Fungal infection [Recovering/Resolving]
